FAERS Safety Report 5158186-X (Version None)
Quarter: 2006Q4

REPORT INFORMATION
  Report Type: 
  Country: None (occurrence: None)
  Receive Date: 20061121
  Receipt Date: 20061121
  Transmission Date: 20070319
  Serious: Yes (Hospitalization, Other)
  Sender: FDA-Public Use
  Company Number: None

PATIENT
  Sex: Male
  Weight: 51 kg

DRUGS (4)
  1. NOVOSEVEN [Suspect]
     Indication: HAEMARTHROSIS
     Dosage: UNKNOWN    (THERAPY DATES: 3 DAYS PRIOR TO ADMISSION)
  2. FEIBA [Suspect]
     Indication: HAEMARTHROSIS
     Dosage: UNKNOWN  (THERAPY DATES: 3 DAYS PRIOR TO ADMISSION)
  3. CEFTRIAXONE [Concomitant]
  4. CIPROFLOXACIN [Concomitant]

REACTIONS (7)
  - APPENDICITIS [None]
  - FLANK PAIN [None]
  - HAEMATURIA [None]
  - OBSTRUCTIVE UROPATHY [None]
  - RENAL HAEMATOMA [None]
  - SERRATIA INFECTION [None]
  - THROMBOSIS [None]
